FAERS Safety Report 17726510 (Version 2)
Quarter: 2020Q2

REPORT INFORMATION
  Report Type: Spontaneous
  Country: CA (occurrence: CA)
  Receive Date: 20200430
  Receipt Date: 20200520
  Transmission Date: 20200714
  Serious: Yes (Other)
  Sender: FDA-Public Use
  Company Number: CA-ORION CORPORATION ORION PHARMA-TREX2020-1904

PATIENT
  Age: 70 Year
  Sex: Male

DRUGS (13)
  1. ANUSOL-HC [Concomitant]
     Active Substance: HYDROCORTISONE
     Route: 065
     Dates: start: 20200106
  2. ENTYVIO [Concomitant]
     Active Substance: VEDOLIZUMAB
     Indication: COLITIS
     Dosage: FROM AUG-2017 (ALSO REPORTED AS FROM SEP-2017) TO AUG-2019
     Route: 065
     Dates: end: 201908
  3. 5-ASA [Concomitant]
     Active Substance: MESALAMINE
     Route: 065
  4. FOLIC ACID. [Concomitant]
     Active Substance: FOLIC ACID
     Indication: COLITIS
     Route: 065
     Dates: start: 20190219
  5. HCTZ [Concomitant]
     Active Substance: HYDROCHLOROTHIAZIDE
     Route: 065
  6. 5-ASA [Concomitant]
     Active Substance: MESALAMINE
     Route: 065
  7. METHOTREXATE (TRADE NAME UNKNOWN) [Suspect]
     Active Substance: METHOTREXATE
     Indication: COLITIS
     Dosage: 8 PILL EVERY WEEK
     Route: 048
     Dates: start: 20200219
  8. ENTOCORT ENEMA [Concomitant]
     Route: 065
  9. ENTYVIO [Concomitant]
     Active Substance: VEDOLIZUMAB
     Route: 042
  10. ENTYVIO [Concomitant]
     Active Substance: VEDOLIZUMAB
     Route: 065
     Dates: start: 201908, end: 20200414
  11. ASPIRIN 81 [Concomitant]
     Active Substance: ASPIRIN
     Route: 065
  12. ROSUVASTATIN. [Concomitant]
     Active Substance: ROSUVASTATIN
     Route: 065
  13. RANITIDINE. [Concomitant]
     Active Substance: RANITIDINE
     Route: 065

REACTIONS (3)
  - Rectal tenesmus [Unknown]
  - Product use in unapproved indication [Unknown]
  - Colitis [Unknown]
